FAERS Safety Report 4392563-X (Version None)
Quarter: 2004Q3

REPORT INFORMATION
  Report Type: 
  Country: None (occurrence: None)
  Receive Date: 20040701
  Receipt Date: 20040624
  Transmission Date: 20050211
  Serious: Yes (Hospitalization, Other)
  Sender: FDA-Public Use
  Company Number: HQWYE656724JUN04

PATIENT
  Age: 71 Year
  Sex: Male

DRUGS (1)
  1. CORDARONE [Suspect]
     Dosage: 200 MG, TABLET ORAL
     Route: 048
     Dates: start: 20040122, end: 20040401

REACTIONS (6)
  - ALANINE AMINOTRANSFERASE INCREASED [None]
  - ASPARTATE AMINOTRANSFERASE INCREASED [None]
  - BLOOD ALKALINE PHOSPHATASE INCREASED [None]
  - GAMMA-GLUTAMYLTRANSFERASE INCREASED [None]
  - HEPATIC ENZYME INCREASED [None]
  - JAUNDICE [None]
